FAERS Safety Report 5379176-8 (Version None)
Quarter: 2007Q3

REPORT INFORMATION
  Report Type: 
  Country: None (occurrence: None)
  Receive Date: 20070705
  Receipt Date: 20070625
  Transmission Date: 20080115
  Serious: Yes (Other)
  Sender: FDA-Public Use
  Company Number: US-BRISTOL-MYERS SQUIBB COMPANY-13825328

PATIENT
  Age: 13 Year
  Sex: Male

DRUGS (15)
  1. METHOTREXATE [Suspect]
     Indication: NON-HODGKIN'S LYMPHOMA STAGE I
     Route: 041
     Dates: start: 20050301
  2. METHOTREXATE [Suspect]
     Route: 037
     Dates: start: 20050401
  3. CYCLOPHOSPHAMIDE [Suspect]
     Indication: NON-HODGKIN'S LYMPHOMA
     Route: 042
  4. VINCRISTINE SULFATE [Suspect]
     Indication: NON-HODGKIN'S LYMPHOMA
     Route: 040
  5. HYDROCORTISONE [Suspect]
     Indication: NON-HODGKIN'S LYMPHOMA
     Route: 037
     Dates: start: 20050401
  6. IFOSFAMIDE [Suspect]
     Indication: NON-HODGKIN'S LYMPHOMA
  7. ETOPOSIDE [Suspect]
     Indication: NON-HODGKIN'S LYMPHOMA
  8. DOXORUBICIN HCL [Suspect]
     Indication: NON-HODGKIN'S LYMPHOMA
  9. SODIUM BICARBONATE [Suspect]
     Indication: FLUID REPLACEMENT
     Dates: start: 20050301
  10. LEUCOVORIN CALCIUM [Suspect]
     Indication: DRUG TOXICITY PROPHYLAXIS
     Dates: start: 20050301
  11. DEXAMETHASONE [Suspect]
     Indication: NON-HODGKIN'S LYMPHOMA
     Route: 048
     Dates: start: 20050401
  12. CYTARABINE [Suspect]
     Indication: NON-HODGKIN'S LYMPHOMA
     Route: 037
     Dates: start: 20050401
  13. VORAXAZE [Suspect]
     Indication: DRUG TOXICITY
     Route: 042
  14. PREDNISOLONE [Suspect]
     Indication: NON-HODGKIN'S LYMPHOMA
  15. VINDESINE [Suspect]
     Indication: NON-HODGKIN'S LYMPHOMA

REACTIONS (1)
  - NEPHROPATHY TOXIC [None]
